FAERS Safety Report 9712068 (Version 2)
Quarter: 2013Q4

REPORT INFORMATION
  Report Type: Spontaneous
  Country: US (occurrence: US)
  Receive Date: 20131126
  Receipt Date: 20131126
  Transmission Date: 20140711
  Serious: No
  Sender: FDA-Public Use
  Company Number: US-BRISTOL-MYERS SQUIBB COMPANY-18837625

PATIENT
  Age: 59 Year
  Sex: Female
  Weight: 22.68 kg

DRUGS (4)
  1. BYDUREON [Suspect]
     Indication: TYPE 2 DIABETES MELLITUS
     Dosage: 1 DF: 2MG ONCE IN 9-10 DAYS.?PRES#410-2460470149
     Route: 058
     Dates: start: 20121012
  2. METFORMIN HCL [Suspect]
  3. GLYBURIDE [Suspect]
  4. ACTOS [Suspect]
     Dates: end: 201211

REACTIONS (12)
  - Blood glucose fluctuation [Unknown]
  - Injection site haemorrhage [Unknown]
  - Injection site mass [Unknown]
  - Injection site pain [Unknown]
  - Injection site erythema [Unknown]
  - Injection site discolouration [Unknown]
  - Drug administration error [Unknown]
  - Drug ineffective [Unknown]
  - Monocyte count increased [Unknown]
  - Constipation [Unknown]
  - Product quality issue [Unknown]
  - Weight decreased [Unknown]
